FAERS Safety Report 5747141-4 (Version None)
Quarter: 2008Q2

REPORT INFORMATION
  Report Type: 
  Country: None (occurrence: None)
  Receive Date: 20080520
  Receipt Date: 20080509
  Transmission Date: 20081010
  Serious: Yes (Death)
  Sender: FDA-Public Use
  Company Number: E-08-116

PATIENT
  Age: 68 Year
  Sex: Male
  Weight: 63 kg

DRUGS (10)
  1. HYDROCHLOROTHIAZIDE [Suspect]
     Indication: CARDIAC FAILURE
     Dates: start: 20070101, end: 20080411
  2. HYDROCHLOROTHIAZIDE [Suspect]
     Indication: HYPERTENSION
     Dates: start: 20070101, end: 20080411
  3. BISOPROLOL FUMARATE [Concomitant]
  4. LISINOPRIL [Concomitant]
  5. NEXIUM [Concomitant]
  6. DEXAMETHASONE TAB [Concomitant]
  7. METAMIZOLE [Concomitant]
  8. TORSEMIDE [Concomitant]
  9. TEMOZOLOMIDE [Concomitant]
  10. FELODIPINE [Concomitant]

REACTIONS (2)
  - CARDIAC DISORDER [None]
  - DYSPNOEA [None]
